FAERS Safety Report 4828914-9 (Version None)
Quarter: 2005Q4

REPORT INFORMATION
  Report Type: 
  Country: None (occurrence: None)
  Receive Date: 20051014
  Receipt Date: 20050711
  Transmission Date: 20060501
  Serious: No
  Sender: FDA-Public Use
  Company Number: 2005SP001842

PATIENT
  Age: 52 Year
  Sex: Female
  Weight: 63.5036 kg

DRUGS (9)
  1. LUNESTA [Suspect]
     Indication: INSOMNIA
     Dosage: 2 MG;1X;ORAL
     Route: 048
     Dates: start: 20050526, end: 20050526
  2. LUNESTA [Suspect]
     Indication: MENOPAUSE
     Dosage: 2 MG;1X;ORAL
     Route: 048
     Dates: start: 20050526, end: 20050526
  3. LUNESTA [Suspect]
     Indication: INSOMNIA
     Dosage: 2 MG;1X;ORAL
     Route: 048
     Dates: start: 20050601, end: 20050601
  4. LUNESTA [Suspect]
     Indication: MENOPAUSE
     Dosage: 2 MG;1X;ORAL
     Route: 048
     Dates: start: 20050601, end: 20050601
  5. ADVIL [Concomitant]
  6. ASPIRIN [Concomitant]
  7. VITAMINS [Concomitant]
  8. RESTORIL [Concomitant]
  9. AMBIEN [Concomitant]

REACTIONS (2)
  - DYSGEUSIA [None]
  - INSOMNIA [None]
